FAERS Safety Report 14670897 (Version 1)
Quarter: 2018Q1

REPORT INFORMATION
  Report Type: Report from Study
  Country: US (occurrence: US)
  Receive Date: 20180322
  Receipt Date: 20180322
  Transmission Date: 20180509
  Serious: Yes (Hospitalization, Disabling, Other)
  Sender: FDA-Public Use
  Company Number: US-GILEAD-2018-0328291

PATIENT
  Age: 34 Year
  Sex: Male

DRUGS (1)
  1. EMTRICITABINE/TENOFOVIR DISOPROXIL FUMARATE [Suspect]
     Active Substance: EMTRICITABINE\TENOFOVIR DISOPROXIL FUMARATE
     Indication: HIV INFECTION
     Dosage: 1 DF, QD
     Route: 048
     Dates: start: 201603

REACTIONS (5)
  - Dehydration [Recovered/Resolved]
  - Aortic valve disease [Not Recovered/Not Resolved]
  - Cystitis [Recovered/Resolved]
  - Cerebrovascular accident [Not Recovered/Not Resolved]
  - Splenic infection [Recovered/Resolved]

NARRATIVE: CASE EVENT DATE: 201707
